FAERS Safety Report 6405854 (Version 3)
Quarter: 2013Q1

REPORT INFORMATION
  Report Type: Spontaneous
  Country: JP (occurrence: JP)
  Receive Date: 20070827
  Receipt Date: 20130305
  Transmission Date: 20140127
  Serious: Yes (Other)
  Sender: FDA-Public Use
  Company Number: 2007BI005081

PATIENT
  Age: 43 Year
  Sex: Female

DRUGS (1)
  1. AVONEX [Suspect]
     Indication: MULTIPLE SCLEROSIS
     Route: 030
     Dates: start: 20070104, end: 20070303

REACTIONS (3)
  - Hepatic function abnormal [Recovered/Resolved]
  - Decreased appetite [Not Recovered/Not Resolved]
  - Influenza like illness [Recovered/Resolved]
